FAERS Safety Report 24578367 (Version 1)
Quarter: 2024Q4

REPORT INFORMATION
  Report Type: Spontaneous
  Country: GB (occurrence: GB)
  Receive Date: 20241105
  Receipt Date: 20241105
  Transmission Date: 20250114
  Serious: Yes (Disabling, Other)
  Sender: NOVO NORDISK
  Company Number: GB-MHRA-EMIS-340-0961bfb4-a40b-410f-b7dc-38271b5a4aa2

PATIENT
  Age: 72 Year
  Sex: Male
  Weight: 85 kg

DRUGS (6)
  1. OZEMPIC [Suspect]
     Active Substance: SEMAGLUTIDE
     Indication: Product used for unknown indication
     Dosage: UNK (INJECT ONE DOSE SUBCUTANEOUSLY ONCE EACH WEEK)
     Route: 058
     Dates: start: 20240212, end: 20240919
  2. HERBALS\TURMERIC [Concomitant]
     Active Substance: HERBALS\TURMERIC
     Indication: Product used for unknown indication
     Dosage: 500 MG, QD (28MG)
  3. CINNAMON\HERBALS [Concomitant]
     Active Substance: CINNAMON\HERBALS
     Indication: Product used for unknown indication
     Dosage: 2000 MG, QD (28MG)
  4. CHOLECALCIFEROL [Concomitant]
     Active Substance: CHOLECALCIFEROL
     Indication: Product used for unknown indication
     Dosage: 400 IU, QD (28IU)
  5. ZINC [Concomitant]
     Active Substance: ZINC
     Indication: Product used for unknown indication
     Dosage: 15 MG, QD (28MG)
  6. SITAGLIPTIN [Concomitant]
     Active Substance: SITAGLIPTIN
     Indication: Type 2 diabetes mellitus
     Dosage: UNK (ONE TO BE TAKEN EACH DAY)
     Dates: start: 20240913

REACTIONS (7)
  - Depression [Recovered/Resolved]
  - Blepharitis [Recovered/Resolved]
  - Arthralgia [Recovered/Resolved]
  - Gingival pain [Recovered/Resolved]
  - Gastrooesophageal reflux disease [Recovered/Resolved]
  - Eructation [Recovered/Resolved]
  - Fatigue [Recovered/Resolved]

NARRATIVE: CASE EVENT DATE: 20240212
